FAERS Safety Report 10493901 (Version 1)
Quarter: 2014Q4

REPORT INFORMATION
  Report Type: Report from Study
  Country: DE (occurrence: DE)
  Receive Date: 20141003
  Receipt Date: 20141003
  Transmission Date: 20150528
  Serious: Yes (Other)
  Sender: FDA-Public Use
  Company Number: DE-AMGEN-DEUSP2014075303

PATIENT
  Sex: Female
  Weight: 47 kg

DRUGS (1)
  1. PROLIA [Suspect]
     Active Substance: DENOSUMAB
     Indication: OSTEOPOROSIS POSTMENOPAUSAL
     Dosage: UNK
     Route: 065

REACTIONS (10)
  - Activities of daily living impaired [Unknown]
  - Osteoarthritis [Unknown]
  - General physical health deterioration [Unknown]
  - Asthenia [Unknown]
  - Surgery [Unknown]
  - Weight decreased [Unknown]
  - Body height decreased [Unknown]
  - Chronic kidney disease [Unknown]
  - Vitamin D deficiency [Unknown]
  - Hypertension [Unknown]
